FAERS Safety Report 12626249 (Version 4)
Quarter: 2017Q1

REPORT INFORMATION
  Report Type: Spontaneous
  Country: US (occurrence: US)
  Receive Date: 20160805
  Receipt Date: 20170126
  Transmission Date: 20170428
  Serious: No
  Sender: FDA-Public Use
  Company Number: US-ACTELION-A-NJ2015-113568

PATIENT
  Age: 44 Year
  Sex: Female

DRUGS (6)
  1. ADCIRCA [Concomitant]
     Active Substance: TADALAFIL
  2. VELETRI [Suspect]
     Active Substance: EPOPROSTENOL
     Dosage: UNK
     Route: 042
  3. REVATIO [Concomitant]
     Active Substance: SILDENAFIL CITRATE
  4. COUMADIN [Concomitant]
     Active Substance: WARFARIN SODIUM
  5. VELETRI [Suspect]
     Active Substance: EPOPROSTENOL
     Indication: PULMONARY ARTERIAL HYPERTENSION
     Dosage: 40 NG/KG, PER MIN
     Route: 042
     Dates: start: 20131018
  6. LETAIRIS [Concomitant]
     Active Substance: AMBRISENTAN

REACTIONS (11)
  - Headache [Unknown]
  - Nasopharyngitis [Unknown]
  - Clostridium difficile infection [Unknown]
  - Scab [Unknown]
  - Diarrhoea [Unknown]
  - Nausea [Unknown]
  - Back pain [Unknown]
  - Sinus pain [Unknown]
  - Arthralgia [Unknown]
  - Pain in jaw [Unknown]
  - Pain in extremity [Unknown]
